FAERS Safety Report 5865876-X (Version None)
Quarter: 2008Q3

REPORT INFORMATION
  Report Type: 
  Country: None (occurrence: None)
  Receive Date: 20080829
  Receipt Date: 20080819
  Transmission Date: 20090109
  Serious: Yes (Other)
  Sender: FDA-Public Use
  Company Number: US-ELI_LILLY_AND_COMPANY-US200808003560

PATIENT
  Sex: Female
  Weight: 63.946 kg

DRUGS (4)
  1. ZYPREXA [Suspect]
     Dates: start: 20080101, end: 20080721
  2. BETASERON [Concomitant]
     Indication: RELAPSING-REMITTING MULTIPLE SCLEROSIS
     Dosage: 2 MIU, QOD
     Route: 058
     Dates: start: 20080118, end: 20080129
  3. BETASERON [Concomitant]
     Dosage: 2 MIU, WEEKLY (1/W)
     Route: 058
     Dates: start: 20080130, end: 20080208
  4. BETASERON [Concomitant]
     Dosage: 8 MIU, QOD
     Route: 058
     Dates: start: 20080101

REACTIONS (20)
  - ABDOMINAL DISCOMFORT [None]
  - ANXIETY [None]
  - CONJUNCTIVITIS INFECTIVE [None]
  - CONSTIPATION [None]
  - DEPRESSION [None]
  - DIZZINESS [None]
  - HEADACHE [None]
  - HEPATIC LESION [None]
  - INCREASED APPETITE [None]
  - INSOMNIA [None]
  - MULTIPLE SCLEROSIS [None]
  - NAUSEA [None]
  - OEDEMA PERIPHERAL [None]
  - PYREXIA [None]
  - RENAL CYST [None]
  - RENAL MASS [None]
  - SWELLING FACE [None]
  - URINARY TRACT INFECTION [None]
  - VOMITING [None]
  - WEIGHT INCREASED [None]
